FAERS Safety Report 16663510 (Version 1)
Quarter: 2019Q3

REPORT INFORMATION
  Report Type: Spontaneous
  Country: US (occurrence: US)
  Receive Date: 20190619
  Receipt Date: 20190619
  Transmission Date: 20191004
  Serious: Yes (Hospitalization)
  Sender: FDA-Public Use
  Company Number: None

PATIENT
  Age: 87 Year
  Sex: Male
  Weight: 81.65 kg

DRUGS (7)
  1. VITAMIN D OIL [Concomitant]
  2. BABY ASPIRIN [Concomitant]
     Active Substance: ASPIRIN
  3. DYAZIDE [Concomitant]
     Active Substance: HYDROCHLOROTHIAZIDE\TRIAMTERENE
  4. HEMP OIL SUPPLEMENT BY RESTORATIVE BOTANICALS CHOCOLATE MINT FLAVOR [Suspect]
     Active Substance: CANNABIS SATIVA SEED OIL
     Indication: INSOMNIA
     Dosage: ?          QUANTITY:30 ML MILLILITRE(S);?
     Route: 048
     Dates: start: 20190306, end: 20190406
  5. ACCUPRIL [Concomitant]
     Active Substance: QUINAPRIL HYDROCHLORIDE
  6. STATIN [Concomitant]
     Active Substance: UNSPECIFIED INGREDIENT
  7. METAMUCIL [Concomitant]
     Active Substance: PLANTAGO SEED

REACTIONS (4)
  - Drug interaction [None]
  - Vomiting [None]
  - Vocal cord disorder [None]
  - Aphasia [None]

NARRATIVE: CASE EVENT DATE: 20190406
